FAERS Safety Report 11391927 (Version 1)
Quarter: 2015Q3

REPORT INFORMATION
  Report Type: Spontaneous
  Country: None (occurrence: None)
  Receive Date: 20150814
  Receipt Date: 20150814
  Transmission Date: 20151125
  Serious: No
  Sender: FDA-Public Use
  Company Number: None

PATIENT
  Age: 48 Year
  Sex: Female
  Weight: 68.49 kg

DRUGS (2)
  1. TAMOXIFEN 20 MG TEVA [Suspect]
     Active Substance: TAMOXIFEN
     Indication: BREAST CANCER
     Dosage: 1 PILL
     Route: 048
  2. TAMOXIFEN 20 MG TEVA [Suspect]
     Active Substance: TAMOXIFEN
     Indication: HORMONE SUPPRESSION THERAPY
     Dosage: 1 PILL
     Route: 048

REACTIONS (3)
  - Urticaria [None]
  - Rash papular [None]
  - Contusion [None]

NARRATIVE: CASE EVENT DATE: 20150810
